FAERS Safety Report 4675919-7 (Version None)
Quarter: 2005Q2

REPORT INFORMATION
  Report Type: 
  Country: None (occurrence: None)
  Receive Date: 20050526
  Receipt Date: 20050526
  Transmission Date: 20051028
  Serious: Yes (Death)
  Sender: FDA-Public Use
  Company Number: None

PATIENT
  Age: 94 Year
  Sex: Female
  Weight: 37.6486 kg

DRUGS (6)
  1. ZYPREXA [Suspect]
     Indication: ANXIETY
     Dosage: 12 MG   PER DAY   ORAL
     Route: 048
     Dates: start: 20050404, end: 20050426
  2. ZYPREXA [Suspect]
     Indication: NERVOUSNESS
     Dosage: 12 MG   PER DAY   ORAL
     Route: 048
     Dates: start: 20050404, end: 20050426
  3. CEPHALEXIN [Suspect]
     Indication: INFECTION PROPHYLAXIS
     Dosage: 4 TABLETS   PER DAY   ORAL
     Route: 048
     Dates: start: 20050414, end: 20050426
  4. CEPHALEXIN [Suspect]
     Indication: WOUND
     Dosage: 4 TABLETS   PER DAY   ORAL
     Route: 048
     Dates: start: 20050414, end: 20050426
  5. CALCITONIN NASAL SPRAY [Concomitant]
  6. VITAMINS [Concomitant]

REACTIONS (6)
  - ASTHENIA [None]
  - CHOKING [None]
  - COUGH [None]
  - DYSPNOEA [None]
  - RESPIRATORY DISORDER [None]
  - RESPIRATORY TRACT CONGESTION [None]
